FAERS Safety Report 23467973 (Version 3)
Quarter: 2024Q1

REPORT INFORMATION
  Report Type: Spontaneous
  Country: US (occurrence: US)
  Receive Date: 20240201
  Receipt Date: 20240206
  Transmission Date: 20240410
  Serious: No
  Sender: FDA-Public Use
  Company Number: US-ABBVIE-5608360

PATIENT
  Sex: Female
  Weight: 2 kg

DRUGS (2)
  1. IRON DEXTRAN [Suspect]
     Active Substance: IRON DEXTRAN
     Indication: Anaemia neonatal
     Dosage: DOSE: 1 MG/KG/DAY
     Route: 065
     Dates: start: 20231118, end: 20240118
  2. OMEGAVEN [Concomitant]
     Active Substance: FISH OIL
     Indication: Bilirubin conjugated abnormal
     Dosage: DOSE: 1G/KG/DAY
     Dates: start: 20231118, end: 20240118

REACTIONS (4)
  - Vascular device occlusion [Recovered/Resolved]
  - Vascular device occlusion [Recovered/Resolved]
  - Vascular device occlusion [Recovered/Resolved]
  - Vascular device occlusion [Unknown]

NARRATIVE: CASE EVENT DATE: 20230101
